FAERS Safety Report 8717839 (Version 2)
Quarter: 2012Q4

REPORT INFORMATION
  Report Type: 
  Country: US (occurrence: US)
  Receive Date: 20120810
  Receipt Date: 20120912
  Transmission Date: 20130627
  Serious: Yes (Hospitalization)
  Sender: FDA-Public Use
  Company Number: US-ROCHE-1097053

PATIENT
  Age: 37 Year
  Sex: Male

DRUGS (5)
  1. ACTIVASE [Suspect]
     Indication: PRODUCT USED FOR UNKNOWN INDICATION
  2. PROCARDIA [Concomitant]
     Route: 065
  3. NITRO-BID [Concomitant]
     Route: 065
  4. CAPOTEN [Concomitant]
     Route: 065
  5. LOPRESSOR [Concomitant]
     Route: 065

REACTIONS (7)
  - Chest pain [Unknown]
  - Ventricular tachycardia [Unknown]
  - Ventricular extrasystoles [Unknown]
  - Extrasystoles [Unknown]
  - Blood pressure decreased [Unknown]
  - Atelectasis [Recovering/Resolving]
  - Polycythaemia [Unknown]
